FAERS Safety Report 7551092-2 (Version None)
Quarter: 2011Q2

REPORT INFORMATION
  Report Type: 
  Country: None (occurrence: None)
  Receive Date: 20110616
  Receipt Date: 20110613
  Transmission Date: 20111010
  Serious: Yes (Hospitalization)
  Sender: FDA-Public Use
  Company Number: CA-BRISTOL-MYERS SQUIBB COMPANY-15829807

PATIENT
  Age: 54 Year
  Sex: Female

DRUGS (5)
  1. DEXAMETHASONE [Concomitant]
     Dates: start: 20110609
  2. FUROSEMIDE [Concomitant]
     Dates: start: 20110609
  3. VENTOLIN HFA [Concomitant]
     Dates: start: 20110527
  4. IPILIMUMAB [Suspect]
     Indication: MALIGNANT MELANOMA
     Route: 042
     Dates: start: 20110513, end: 20110602
  5. APO-SALVENT [Concomitant]
     Dates: start: 20110527

REACTIONS (2)
  - HYPERCALCAEMIA [None]
  - PAIN [None]
